FAERS Safety Report 6898200-4 (Version None)
Quarter: 2010Q3

REPORT INFORMATION
  Report Type: 
  Country: None (occurrence: None)
  Receive Date: 20100802
  Receipt Date: 20070925
  Transmission Date: 20110219
  Serious: Yes (Other)
  Sender: FDA-Public Use
  Company Number: US-PFIZER INC-2007080424

PATIENT
  Sex: Female
  Weight: 79.4 kg

DRUGS (5)
  1. LYRICA [Suspect]
     Indication: FIBROMYALGIA
  2. SIMVASTATIN [Concomitant]
  3. SYNTHROID [Concomitant]
  4. CELEBREX [Concomitant]
  5. SKELAXIN [Concomitant]

REACTIONS (4)
  - COGNITIVE DISORDER [None]
  - DIZZINESS [None]
  - IMPAIRED DRIVING ABILITY [None]
  - VISUAL IMPAIRMENT [None]
